FAERS Safety Report 7132040-6 (Version None)
Quarter: 2010Q4

REPORT INFORMATION
  Report Type: 
  Country: None (occurrence: None)
  Receive Date: 20101130
  Receipt Date: 20101130
  Transmission Date: 20110411
  Serious: Yes (Disabling)
  Sender: FDA-Public Use
  Company Number: None

PATIENT
  Age: 60 Year
  Sex: Female
  Weight: 82 kg

DRUGS (1)
  1. ATEPLASE 58 MILLION IU GENETECH [Suspect]

REACTIONS (2)
  - DYSPNOEA [None]
  - SWOLLEN TONGUE [None]
